FAERS Safety Report 9955774 (Version 1)
Quarter: 2014Q1

REPORT INFORMATION
  Report Type: Spontaneous
  Country: IN (occurrence: IN)
  Receive Date: 20140304
  Receipt Date: 20140304
  Transmission Date: 20141002
  Serious: Yes (Other)
  Sender: FDA-Public Use
  Company Number: IN-ABBVIE-14P-078-1205542-00

PATIENT
  Age: 5 Year
  Sex: Female

DRUGS (2)
  1. SODIUM VALPROATE [Suspect]
     Indication: DEVELOPMENTAL DELAY
  2. SODIUM VALPROATE [Suspect]
     Indication: EPILEPSY

REACTIONS (1)
  - Gingival disorder [Recovered/Resolved]
